FAERS Safety Report 5636602-4 (Version None)
Quarter: 2008Q1

REPORT INFORMATION
  Report Type: 
  Country: None (occurrence: None)
  Receive Date: 20080219
  Receipt Date: 20080219
  Transmission Date: 20080703
  Serious: Yes (Hospitalization)
  Sender: FDA-Public Use
  Company Number: None

PATIENT
  Sex: Male
  Weight: 84 kg

DRUGS (13)
  1. BEVACIZUMAB (GENENTECH) [Suspect]
     Indication: GLIOBLASTOMA MULTIFORME
     Dosage: 10 MG/KG, IV Q2WKS
     Route: 042
     Dates: start: 20071026
  2. BEVACIZUMAB (GENENTECH) [Suspect]
     Indication: GLIOBLASTOMA MULTIFORME
     Dosage: 10 MG/KG, IV Q2WKS
     Route: 042
     Dates: start: 20071109
  3. BEVACIZUMAB (GENENTECH) [Suspect]
     Indication: GLIOBLASTOMA MULTIFORME
     Dosage: 10 MG/KG, IV Q2WKS
     Route: 042
     Dates: start: 20071121
  4. BEVACIZUMAB (GENENTECH) [Suspect]
     Indication: GLIOBLASTOMA MULTIFORME
     Dosage: 10 MG/KG, IV Q2WKS
     Route: 042
     Dates: start: 20071206
  5. TEMOZOLOMIDE [Suspect]
     Indication: GLIOBLASTOMA MULTIFORME
     Dosage: 50 MG/M2, PO X5D Q28D
     Route: 048
     Dates: start: 20071026, end: 20071220
  6. LISINOPRIL [Concomitant]
  7. PEPCID [Concomitant]
  8. DEXAMETHASONE TAB [Concomitant]
  9. FLONASE [Concomitant]
  10. ZOFRAN [Concomitant]
  11. FLOMAX [Concomitant]
  12. NYSTATIN MOUTHWASH [Concomitant]
  13. LASIX [Concomitant]

REACTIONS (4)
  - DEEP VEIN THROMBOSIS [None]
  - HAEMATOCHEZIA [None]
  - HYPERGLYCAEMIA [None]
  - PULMONARY EMBOLISM [None]
